FAERS Safety Report 16455680 (Version 1)
Quarter: 2019Q2

REPORT INFORMATION
  Report Type: Spontaneous
  Country: US (occurrence: US)
  Receive Date: 20190619
  Receipt Date: 20190619
  Transmission Date: 20190711
  Serious: No
  Sender: FDA-Public Use
  Company Number: US-TEIKOKU PHARMA USA-TPU2019-00481

PATIENT
  Sex: Female
  Weight: 72.64 kg

DRUGS (5)
  1. LIDODERM [Suspect]
     Active Substance: LIDOCAINE
     Indication: INTERVERTEBRAL DISC PROTRUSION
     Dosage: IN HER LOWER BACK IN THE L3, L4 AND L5
     Dates: end: 2013
  2. TYLENOL [Concomitant]
     Active Substance: ACETAMINOPHEN
     Indication: PAIN
     Dosage: 8-10 OF THE 500MG TABLETS
  3. LIDOCAINE PATCH [Suspect]
     Active Substance: LIDOCAINE
     Indication: BACK PAIN
  4. LIDOCAINE PATCH [Suspect]
     Active Substance: LIDOCAINE
     Indication: INTERVERTEBRAL DISC PROTRUSION
     Dosage: IN HER LOWER BACK IN THE L3, L4 AND L5
     Dates: start: 2011, end: 2013
  5. LIDODERM [Suspect]
     Active Substance: LIDOCAINE
     Indication: BACK PAIN

REACTIONS (8)
  - Drug ineffective for unapproved indication [Unknown]
  - Obesity [Unknown]
  - Tobacco user [Unknown]
  - Decreased activity [Unknown]
  - Anaemia [Unknown]
  - Osteoporosis [Unknown]
  - Walking aid user [Unknown]
  - Spinal disorder [Unknown]
